FAERS Safety Report 21360529 (Version 3)
Quarter: 2022Q4

REPORT INFORMATION
  Report Type: Spontaneous
  Country: US (occurrence: US)
  Receive Date: 20220921
  Receipt Date: 20221026
  Transmission Date: 20230113
  Serious: Yes (Other)
  Sender: FDA-Public Use
  Company Number: US-BAYER-2022A129611

PATIENT
  Age: 3 Year
  Sex: Male

DRUGS (4)
  1. KOGENATE FS [Suspect]
     Active Substance: ANTIHEMOPHILIC FACTOR, HUMAN RECOMBINANT
     Dosage: 750 IU
  2. KOGENATE FS [Suspect]
     Active Substance: ANTIHEMOPHILIC FACTOR, HUMAN RECOMBINANT
     Dosage: 1 DF, TO TREAT LIMPING FROM RIGHT LEG
     Dates: start: 202209, end: 202209
  3. KOGENATE FS [Suspect]
     Active Substance: ANTIHEMOPHILIC FACTOR, HUMAN RECOMBINANT
     Dosage: 1 DF, TO TREAT EAR TUBE INSERTION
     Dates: start: 2022, end: 2022
  4. KOGENATE FS [Suspect]
     Active Substance: ANTIHEMOPHILIC FACTOR, HUMAN RECOMBINANT
     Dosage: 1 DF, TO TREAT EYE CONTUSION

REACTIONS (4)
  - Ear infection [None]
  - Gait disturbance [Recovered/Resolved]
  - Ear tube insertion [None]
  - Eye contusion [Recovering/Resolving]

NARRATIVE: CASE EVENT DATE: 20220601
